FAERS Safety Report 20159564 (Version 2)
Quarter: 2021Q4

REPORT INFORMATION
  Report Type: Spontaneous
  Country: GB (occurrence: GB)
  Receive Date: 20211208
  Receipt Date: 20211215
  Transmission Date: 20220303
  Serious: Yes (Death, Other)
  Sender: FDA-Public Use
  Company Number: GB-009507513-2112GBR001912

PATIENT
  Sex: Male

DRUGS (3)
  1. RALTEGRAVIR POTASSIUM [Suspect]
     Active Substance: RALTEGRAVIR POTASSIUM
     Dosage: STRENGTH 600MG, DOSE 1200MG
     Route: 048
  2. EMTRICITABINE [Suspect]
     Active Substance: EMTRICITABINE
     Dosage: STRENGTH 200/245
  3. EMTRICITABINE [Suspect]
     Active Substance: EMTRICITABINE
     Dosage: STRENGTH 200/245

REACTIONS (1)
  - Death [Fatal]
